FAERS Safety Report 11891481 (Version 1)
Quarter: 2016Q1

REPORT INFORMATION
  Report Type: Spontaneous
  Country: US (occurrence: US)
  Receive Date: 20160106
  Receipt Date: 20160106
  Transmission Date: 20160526
  Serious: Yes (Other)
  Sender: FDA-Public Use
  Company Number: US-AUROBINDO-AUR-APL-2015-12150

PATIENT
  Age: 38 Year
  Sex: Female

DRUGS (6)
  1. LYRICA [Suspect]
     Active Substance: PREGABALIN
     Indication: PAIN
  2. LYRICA [Suspect]
     Active Substance: PREGABALIN
     Indication: FIBROMYALGIA
     Dosage: UNK
  3. METOPROLOL TARTRATE TABLETS USP 25 MG [Suspect]
     Active Substance: METOPROLOL TARTRATE
     Indication: BLOOD PRESSURE MEASUREMENT
     Dosage: 25 MG, TWO TIMES A DAY
     Route: 048
  4. LISINOPRIL-HYDROCHLOROTHIAZIDE [Suspect]
     Active Substance: HYDROCHLOROTHIAZIDE\LISINOPRIL
     Indication: BLOOD PRESSURE MEASUREMENT
     Dosage: 2 RTABLETS AT NIGHT
     Route: 048
  5. ALPRAZOLAM. [Concomitant]
     Active Substance: ALPRAZOLAM
     Indication: ANXIETY
     Dosage: 1 MG, TWO TIMES A DAY
     Route: 048
     Dates: start: 2001
  6. CYCLOBENZAPRIN HCL [Concomitant]
     Active Substance: CYCLOBENZAPRINE HYDROCHLORIDE
     Indication: PRODUCT USED FOR UNKNOWN INDICATION
     Dosage: 1 TABLET THREE TIMES A DAY
     Route: 048

REACTIONS (9)
  - Hypersensitivity [Unknown]
  - Lip swelling [Unknown]
  - Somnolence [Unknown]
  - Weight increased [Not Recovered/Not Resolved]
  - Therapy change [Unknown]
  - Heart rate increased [Unknown]
  - Drug dose omission [Unknown]
  - Fatigue [None]
  - Uterine leiomyoma [Unknown]

NARRATIVE: CASE EVENT DATE: 20151216
